FAERS Safety Report 23193326 (Version 1)
Quarter: 2023Q4

REPORT INFORMATION
  Report Type: Spontaneous
  Country: JP (occurrence: JP)
  Receive Date: 20231116
  Receipt Date: 20231116
  Transmission Date: 20240109
  Serious: Yes (Life-Threatening, Hospitalization, Other)
  Sender: FDA-Public Use
  Company Number: JP-PFIZER INC-PV202300183355

PATIENT
  Age: 68 Year
  Sex: Male

DRUGS (6)
  1. PROPOFOL [Suspect]
     Active Substance: PROPOFOL
     Indication: General anaesthesia
     Dosage: UNK
  2. FENTANYL [Suspect]
     Active Substance: FENTANYL\FENTANYL CITRATE
     Indication: General anaesthesia
     Dosage: UNK
  3. VECURONIUM [Suspect]
     Active Substance: VECURONIUM BROMIDE
     Indication: General anaesthesia
     Dosage: UNK
  4. SEVOFLURANE [Suspect]
     Active Substance: SEVOFLURANE
     Indication: General anaesthesia
     Dosage: 0.5%-1.2%
  5. ROPIVACAINE [Suspect]
     Active Substance: ROPIVACAINE
     Indication: General anaesthesia
     Dosage: 40 ML OF 0.5 %
  6. DOPAMINE [Suspect]
     Active Substance: DOPAMINE HYDROCHLORIDE
     Indication: General anaesthesia
     Dosage: 3 UG/KG/MIN

REACTIONS (1)
  - Ventricular tachycardia [Recovered/Resolved]
